FAERS Safety Report 7740515-1 (Version None)
Quarter: 2011Q3

REPORT INFORMATION
  Report Type: 
  Country: None (occurrence: None)
  Receive Date: 20110909
  Receipt Date: 20110907
  Transmission Date: 20111222
  Serious: Yes (Other)
  Sender: FDA-Public Use
  Company Number: US-PFIZER INC-2011186461

PATIENT
  Sex: Female
  Weight: 66 kg

DRUGS (5)
  1. BUSPIRONE HCL [Suspect]
     Indication: ANXIETY
  2. CHANTIX [Suspect]
     Indication: SMOKING CESSATION THERAPY
     Dosage: 0.5 MG, DAILY
     Dates: start: 20110806, end: 20110801
  3. CLONAZEPAM [Concomitant]
     Indication: ANXIETY
     Dosage: 1 MG, AS NEEDED
  4. CHANTIX [Suspect]
     Dosage: 1 MG, 2X/DAY
     Dates: start: 20110801
  5. BUSPIRONE HCL [Suspect]
     Indication: DEPRESSION
     Dosage: UNK
     Dates: start: 20110701, end: 20110101

REACTIONS (3)
  - STRESS [None]
  - AGITATION [None]
  - ANXIETY [None]
